FAERS Safety Report 13022487 (Version 11)
Quarter: 2021Q4

REPORT INFORMATION
  Report Type: Spontaneous
  Country: US (occurrence: US)
  Receive Date: 20161213
  Receipt Date: 20211208
  Transmission Date: 20220303
  Serious: Yes (Hospitalization, Other)
  Sender: FDA-Public Use
  Company Number: US-PFIZER INC-2016425939

PATIENT
  Age: 53 Year
  Sex: Female
  Weight: 70.295 kg

DRUGS (29)
  1. LYRICA [Suspect]
     Active Substance: PREGABALIN
     Indication: Fibromyalgia
     Dosage: 150 MG, 2X/DAY (1CAPSULE, EVERY12 HOURSX90DAYS, MAX DOSE 2 CAPS IN 24HRS)
     Route: 048
     Dates: start: 2008
  2. LYRICA [Suspect]
     Active Substance: PREGABALIN
     Indication: Lumbar radiculopathy
     Dosage: 100 MG, 3 TIMES DAILY
     Route: 048
     Dates: start: 20160622
  3. LYRICA [Suspect]
     Active Substance: PREGABALIN
     Indication: Intervertebral disc degeneration
     Dosage: 150 MG, 2X/DAY [ TWICE DAILY]
     Route: 048
  4. LYRICA [Suspect]
     Active Substance: PREGABALIN
     Indication: Neck pain
     Dosage: 150 MG, 2X/DAY [TWICE DAILY]
     Route: 048
  5. ALPRAZOLAM [Concomitant]
     Active Substance: ALPRAZOLAM
     Dosage: 1MG TABLET,TAKE 1-2 TABLETS
     Route: 048
  6. BIOTIN [Concomitant]
     Active Substance: BIOTIN
     Dosage: 300 UG, UNK
     Route: 048
  7. BIOTIN [Concomitant]
     Active Substance: BIOTIN
     Dosage: 1000 UG, DAILY
     Route: 048
  8. CYCLOBENZAPRINE [Concomitant]
     Active Substance: CYCLOBENZAPRINE
     Dosage: 10 MG, 2X/DAY
     Route: 048
     Dates: start: 20160502
  9. DIAZEPAM [Concomitant]
     Active Substance: DIAZEPAM
     Dosage: 5 MG, 2X/DAY
     Route: 048
  10. DUEXIS [Concomitant]
     Active Substance: FAMOTIDINE\IBUPROFEN
     Indication: Back pain
     Dosage: 1 DF, AS NEEDED,3 TIMES PER DAY  [FAMOTIDINE 26.6MG]/[IBUPROFEN 800MG]
     Route: 048
  11. ACETAMINOPHEN\HYDROCODONE [Concomitant]
     Active Substance: ACETAMINOPHEN\HYDROCODONE
     Indication: Pain
     Dosage: 1 DF, AS NEEDED, EVERY 6 HOURS  [HYDROCODONE 5MG/ PARACETAMOL 325 MG]
     Route: 048
  12. LEFLUNOMIDE [Concomitant]
     Active Substance: LEFLUNOMIDE
     Indication: Rheumatoid arthritis
     Dosage: 20 MG, 1X/DAY
     Route: 048
  13. MELATONIN [Concomitant]
     Active Substance: MELATONIN
     Dosage: 1 MG, UNK
     Route: 048
  14. MELATONIN [Concomitant]
     Active Substance: MELATONIN
     Dosage: 5 MG, 1X/DAY AT BEDTIME
     Route: 048
  15. PREMARIN [Concomitant]
     Active Substance: ESTROGENS, CONJUGATED
     Dosage: 0.625 MG, 1X/DAY
     Route: 048
  16. PROAIR HFA [Concomitant]
     Active Substance: ALBUTEROL SULFATE
     Dosage: 90 MCG/ACTUATION INHALATION HFA AEROSOL  (INHALE 1 PUFF BY INHALATION ROUTE EVERY 6 HOURS AS NEEDED)
     Route: 055
  17. SPIRIVA [Concomitant]
     Active Substance: TIOTROPIUM BROMIDE MONOHYDRATE
     Dosage: 18 UG, 1X/DAY
     Route: 055
  18. VERAPAMIL [Concomitant]
     Active Substance: VERAPAMIL HYDROCHLORIDE
     Dosage: 120 MG, 3X/DAY
     Route: 048
  19. VITAMIN D3 [Concomitant]
     Active Substance: CHOLECALCIFEROL
     Dosage: 1000 IU, UNK
     Route: 048
  20. SYSTANE (HYPROMELLOSE 2910 (4000 MPA.S)) [Concomitant]
     Active Substance: HYPROMELLOSE 2910 (4000 MPA.S)
     Dosage: 2 GTT, 1X/DAY, (1 DROP IN EACH EYE AT BEDTIME)
     Route: 047
  21. RESTASIS [Concomitant]
     Active Substance: CYCLOSPORINE
     Dosage: 2 GTT, 2X/DAY,  (1 DROP BOTH EYES TWICE A DAY)
     Route: 047
  22. VITAMIN B COMPLEX [Concomitant]
     Active Substance: CYANOCOBALAMIN\DEXPANTHENOL\NIACINAMIDE\PYRIDOXINE HYDROCHLORIDE\RIBOFLAVIN 5^-PHOSPHATE SODIUM\THIA
     Dosage: 1 DF, 1X/DAY, (1 EACH NIGHT)
  23. CALCIUM CARBONATE\VITAMIN D [Concomitant]
     Active Substance: CALCIUM CARBONATE\VITAMIN D
     Dosage: 800 IU OF VITAMIN D3 ONCE EVERY DAY
  24. FLAXSEED [Concomitant]
     Active Substance: FLAX SEED
     Dosage: 1000 MG, 1X/DAY
  25. ATLANTIC SALMON OIL [Concomitant]
     Active Substance: ATLANTIC SALMON OIL
     Dosage: 450 MG, DAILY
  26. TRIFLORA [Concomitant]
     Indication: Arthritis
     Dosage: GEL MASSAGE ONTO AFFECTED AREA NOT MORE THAN 4 TIMES DAILY
  27. FLUCONAZOLE [Concomitant]
     Active Substance: FLUCONAZOLE
     Dosage: 150 MG, UNK
  28. ONE DAILY WOMEN^S 50 PLUS [Concomitant]
     Dosage: 1 DF, 1X/DAY
  29. VERAPAMIL HYDROCHLORIDE [Concomitant]
     Active Substance: VERAPAMIL HYDROCHLORIDE
     Dosage: 240 MG, UNK

REACTIONS (3)
  - Product dose omission issue [Unknown]
  - Seizure [Recovering/Resolving]
  - Drug withdrawal convulsions [Unknown]
